FAERS Safety Report 6250651-7 (Version None)
Quarter: 2009Q2

REPORT INFORMATION
  Report Type: 
  Country: None (occurrence: None)
  Receive Date: 20090630
  Receipt Date: 20090618
  Transmission Date: 20091009
  Serious: Yes (Hospitalization, Other)
  Sender: FDA-Public Use
  Company Number: FR-PFIZER INC-2009177509

PATIENT
  Age: 33 Year

DRUGS (3)
  1. LYRICA [Suspect]
     Indication: NEUROFIBROMATOSIS
     Dosage: UNK
  2. FLAGYL [Concomitant]
  3. CORTICOSTEROID NOS [Concomitant]

REACTIONS (6)
  - CONFUSIONAL STATE [None]
  - CROHN'S DISEASE [None]
  - HYPOGLYCAEMIA [None]
  - HYPOTENSION [None]
  - LOSS OF CONSCIOUSNESS [None]
  - MALAISE [None]
